FAERS Safety Report 6430724-6 (Version None)
Quarter: 2009Q4

REPORT INFORMATION
  Report Type: 
  Country: None (occurrence: None)
  Receive Date: 20091106
  Receipt Date: 20090506
  Transmission Date: 20100525
  Serious: Yes (Death)
  Sender: FDA-Public Use
  Company Number: CH-ASTRAZENECA-2009PK01228

PATIENT
  Age: 55 Year
  Sex: Male

DRUGS (13)
  1. CRESTOR [Suspect]
     Indication: HYPERCHOLESTEROLAEMIA
     Route: 048
     Dates: start: 20090220, end: 20090302
  2. GLUCOPHAGE [Suspect]
     Indication: TYPE 1 DIABETES MELLITUS
     Route: 048
     Dates: end: 20090303
  3. MARCUMAR [Concomitant]
     Route: 048
  4. DIGOXIN [Concomitant]
     Route: 048
  5. PRINZIDE [Concomitant]
     Dosage: 12.5 MG/ 20 MG
     Route: 048
  6. TORAMID [Concomitant]
     Route: 048
  7. CONCOR [Concomitant]
     Route: 048
  8. DAFALGAN [Concomitant]
     Route: 048
  9. TRAMADOL HCL [Concomitant]
     Route: 048
  10. EZETROL [Concomitant]
     Route: 048
  11. LEVEMIR [Concomitant]
     Route: 058
  12. NOVORAPID [Concomitant]
     Route: 058
  13. ISOSORBIDE DINITRATE [Concomitant]
     Route: 048

REACTIONS (8)
  - ASTHENIA [None]
  - BLOOD CREATININE INCREASED [None]
  - BLOOD LACTIC ACID INCREASED [None]
  - COAGULATION TIME SHORTENED [None]
  - DIZZINESS [None]
  - HAEMATEMESIS [None]
  - METABOLIC ACIDOSIS [None]
  - NAUSEA [None]
